FAERS Safety Report 16978181 (Version 2)
Quarter: 2019Q4

REPORT INFORMATION
  Report Type: Spontaneous
  Country: US (occurrence: US)
  Receive Date: 20191031
  Receipt Date: 20191119
  Transmission Date: 20200122
  Serious: Yes (Hospitalization)
  Sender: FDA-Public Use
  Company Number: US-ABBVIE-19K-163-2979107-00

PATIENT
  Age: 20 Year
  Sex: Female

DRUGS (1)
  1. HUMIRA [Suspect]
     Active Substance: ADALIMUMAB
     Indication: CROHN^S DISEASE
     Dosage: UNKNOWN
     Route: 058

REACTIONS (5)
  - Wrong technique in product usage process [Unknown]
  - Incorrect dose administered [Unknown]
  - Intestinal perforation [Unknown]
  - Fear of injection [Unknown]
  - Device issue [Unknown]

NARRATIVE: CASE EVENT DATE: 20191023
